FAERS Safety Report 6866865-9 (Version None)
Quarter: 2010Q3

REPORT INFORMATION
  Report Type: 
  Country: None (occurrence: None)
  Receive Date: 20100722
  Receipt Date: 20100713
  Transmission Date: 20110219
  Serious: Yes (Other)
  Sender: FDA-Public Use
  Company Number: US-WYE-H16181110

PATIENT
  Sex: Female
  Weight: 53.57 kg

DRUGS (9)
  1. PREMARIN [Suspect]
     Indication: HYSTERECTOMY
     Route: 048
     Dates: start: 20020101, end: 20020101
  2. PREMARIN [Suspect]
     Dosage: 1.25 MG TABLET, SPLIT IN HALF, DAILY
     Route: 048
     Dates: start: 20020101, end: 20080101
  3. PREMARIN [Suspect]
     Route: 048
     Dates: start: 20080101
  4. PREMARIN [Suspect]
     Dosage: 0.625MG, SPLIT IN HALF, DAILY
     Route: 048
  5. ASPIRIN [Concomitant]
     Indication: PRODUCT USED FOR UNKNOWN INDICATION
     Dosage: UNKNOWN
     Route: 065
  6. KLOR-CON [Concomitant]
     Indication: PRODUCT USED FOR UNKNOWN INDICATION
     Dosage: UNSPECIFIED STRENGTH; DAILY
     Route: 065
  7. AMBIEN [Concomitant]
     Indication: INSOMNIA
     Dosage: UNKNOWN
     Route: 065
  8. NIFEDIPINE [Concomitant]
     Indication: PRODUCT USED FOR UNKNOWN INDICATION
     Dosage: UNSPECIFIED STRENGTH; DAILY
     Route: 065
  9. LISINOPRIL AND HYDROCHLOROTHIAZIDE [Concomitant]
     Indication: PRODUCT USED FOR UNKNOWN INDICATION
     Dosage: UNSPECIFIED STRENGTH; DAILY
     Route: 065

REACTIONS (4)
  - CHOLECYSTITIS CHRONIC [None]
  - INTRACRANIAL ANEURYSM [None]
  - LABILE BLOOD PRESSURE [None]
  - THYROID CANCER [None]
